FAERS Safety Report 9547247 (Version 1)
Quarter: 2013Q2

REPORT INFORMATION
  Report Type: Spontaneous
  Country: US (occurrence: None)
  Receive Date: 20130606
  Receipt Date: 20130606
  Transmission Date: 20140414
  Serious: No
  Sender: FDA-Public Use
  Company Number: 163-POMAL-13033881

PATIENT
  Age: 68 Year
  Sex: Female

DRUGS (9)
  1. POMALYST (POMALIDOMIDE) (CAPSULES) [Suspect]
     Indication: PLASMA CELL MYELOMA
     Route: 048
     Dates: start: 20130307
  2. AMLODIPINE BESYLATE (AMLODIPINE BESILATE) [Concomitant]
  3. CALCIUM 600 [Concomitant]
  4. CLONAZEPAM (CLONAZEPAM) [Concomitant]
  5. FENTANYL (FENTANYL) [Concomitant]
  6. IRON (IRON) [Concomitant]
  7. VITAMINS [Concomitant]
  8. OMEPRAZOLE (OMEPRAZOLE) [Concomitant]
  9. OXYCODONE HCL (OXYCODONE HYDROCHLORIDE) [Concomitant]

REACTIONS (1)
  - Fatigue [None]
